FAERS Safety Report 10681865 (Version 1)
Quarter: 2014Q4

REPORT INFORMATION
  Report Type: Spontaneous
  Country: US (occurrence: US)
  Receive Date: 20141230
  Receipt Date: 20141230
  Transmission Date: 20150529
  Serious: Yes (Other)
  Sender: FDA-Public Use
  Company Number: US-SA-2014SA177038

PATIENT
  Age: 55 Year
  Sex: Female

DRUGS (3)
  1. TECFIDERA [Concomitant]
     Active Substance: DIMETHYL FUMARATE
  2. AUBAGIO [Suspect]
     Active Substance: TERIFLUNOMIDE
     Indication: MULTIPLE SCLEROSIS
     Route: 048
  3. AUBAGIO [Suspect]
     Active Substance: TERIFLUNOMIDE
     Indication: MULTIPLE SCLEROSIS
     Route: 048
     Dates: start: 20140820, end: 20141215

REACTIONS (8)
  - Oral herpes [Unknown]
  - Condition aggravated [Unknown]
  - Infection susceptibility increased [Unknown]
  - Infected cyst [Unknown]
  - Hepatic enzyme increased [Unknown]
  - Alopecia [Unknown]
  - Neuralgia [Unknown]
  - Alanine aminotransferase increased [Unknown]

NARRATIVE: CASE EVENT DATE: 201405
